FAERS Safety Report 9886447 (Version 3)
Quarter: 2014Q3

REPORT INFORMATION
  Report Type: Spontaneous
  Country: DK (occurrence: DE)
  Receive Date: 20140210
  Receipt Date: 20140728
  Transmission Date: 20150326
  Serious: Yes (Hospitalization)
  Sender: FDA-Public Use
  Company Number: DE-FRI-1000053359

PATIENT

DRUGS (6)
  1. AMLODIPIN [Concomitant]
     Active Substance: AMLODIPINE BESYLATE
     Indication: HYPERTENSION
     Dosage: 2 DF
  2. ACLIDINIUM [Suspect]
     Active Substance: ACLIDINIUM BROMIDE
     Indication: CHRONIC OBSTRUCTIVE PULMONARY DISEASE
     Dosage: 2 DF
     Dates: start: 201302, end: 201309
  3. LISINOPRIL 10 [Concomitant]
     Indication: HYPERTENSION
     Dosage: 1-0-0.5
  4. SIMVASTATIN 40 [Concomitant]
     Active Substance: SIMVASTATIN
     Indication: HYPERLIPIDAEMIA
     Dosage: 0-0-1
  5. ASS 100 [Concomitant]
     Active Substance: ASPIRIN
     Dosage: 1 DF
  6. CARBO Q10 [Concomitant]

REACTIONS (4)
  - Dizziness [Unknown]
  - Dyspnoea [Unknown]
  - Supraventricular tachycardia [Recovered/Resolved]
  - Chest pain [Unknown]

NARRATIVE: CASE EVENT DATE: 20130918
